FAERS Safety Report 6659568-7 (Version None)
Quarter: 2010Q1

REPORT INFORMATION
  Report Type: 
  Country: None (occurrence: None)
  Receive Date: 20100322
  Receipt Date: 20090123
  Transmission Date: 20100710
  Serious: Yes (Other)
  Sender: FDA-Public Use
  Company Number: 2009US-21324

PATIENT
  Age: 16 Year
  Sex: Male
  Weight: 65.8 kg

DRUGS (1)
  1. ISOTRETINOIN [Suspect]
     Indication: ACNE
     Dosage: 40 MG, QD, ORAL : 40 MG, BID
     Route: 048
     Dates: start: 20080804

REACTIONS (1)
  - GRAND MAL CONVULSION [None]
